FAERS Safety Report 24987166 (Version 1)
Quarter: 2025Q1

REPORT INFORMATION
  Report Type: Spontaneous
  Country: US (occurrence: None)
  Receive Date: 20250219
  Receipt Date: 20250219
  Transmission Date: 20250409
  Serious: Yes (Hospitalization)
  Sender: FDA-CTU
  Company Number: None

PATIENT
  Age: 58 Year
  Sex: Male

DRUGS (23)
  1. ENVARSUS XR [Suspect]
     Active Substance: TACROLIMUS
     Indication: Heart transplant
     Dosage: FREQUENCY : DAILY;?
     Route: 048
     Dates: start: 20241231
  2. MYCOPHENOLIC ACID [Suspect]
     Active Substance: MYCOPHENOLIC ACID
     Indication: Heart transplant
     Dosage: FREQUENCY : TWICE A DAY;?
     Route: 048
     Dates: start: 20241231
  3. Acetaminophen 325mg [Concomitant]
     Dates: start: 20241231
  4. Atovaquone 750mg/ml [Concomitant]
     Dates: start: 20241231
  5. BISACODYL [Concomitant]
     Active Substance: BISACODYL
     Dates: start: 20241231
  6. Calcium citrate +Vitamin D3 [Concomitant]
     Dates: start: 20241231
  7. VITAMINS [Concomitant]
     Active Substance: VITAMINS
     Dates: start: 20241231
  8. Diltiazem CD 120mg [Concomitant]
     Dates: start: 20241231
  9. DOCUSATE SODIUM [Concomitant]
     Active Substance: DOCUSATE SODIUM
     Dates: start: 20241231
  10. DOXAZOSIN [Concomitant]
     Active Substance: DOXAZOSIN MESYLATE
     Dates: start: 20241231
  11. DOXYCYCLINE [Concomitant]
     Active Substance: DOXYCYCLINE
     Dates: start: 20241231
  12. DULOXETINE HYDROCHLORIDE [Concomitant]
     Active Substance: DULOXETINE HYDROCHLORIDE
     Dates: start: 20241231
  13. ELIQUIS [Concomitant]
     Active Substance: APIXABAN
     Dates: start: 20241231
  14. ESOMEPRAZOLE [Concomitant]
     Active Substance: ESOMEPRAZOLE
     Dates: start: 20241231
  15. GABAPENTIN [Concomitant]
     Active Substance: GABAPENTIN
     Dates: start: 20241231
  16. INSULIN LISPRO [Concomitant]
     Active Substance: INSULIN LISPRO
     Dates: start: 20241231
  17. NYSTATIN [Concomitant]
     Active Substance: NYSTATIN
     Dates: start: 20241231
  18. PREDNISONE [Concomitant]
     Active Substance: PREDNISONE
     Dates: start: 20241231
  19. PREDNISONE [Concomitant]
     Active Substance: PREDNISONE
     Dates: start: 20241231
  20. ROSUVASTATIN [Concomitant]
     Active Substance: ROSUVASTATIN
     Dates: start: 20241231
  21. TORSEMIDE [Concomitant]
     Active Substance: TORSEMIDE
     Dates: start: 20241231
  22. VALACYCLOVIR [Concomitant]
     Active Substance: VALACYCLOVIR HYDROCHLORIDE
     Dates: start: 20241231
  23. Senna 8.6mg [Concomitant]
     Dates: start: 20241231

REACTIONS (5)
  - Heart transplant [None]
  - Malaise [None]
  - Fatigue [None]
  - Tremor [None]
  - Feeling abnormal [None]

NARRATIVE: CASE EVENT DATE: 20250129
